FAERS Safety Report 8208560-X (Version None)
Quarter: 2012Q1

REPORT INFORMATION
  Report Type: 
  Country: None (occurrence: None)
  Receive Date: 20120314
  Receipt Date: 20120306
  Transmission Date: 20120608
  Serious: Yes (Hospitalization)
  Sender: FDA-Public Use
  Company Number: US-GLAXOSMITHKLINE-A0967009A

PATIENT
  Age: 69 Year
  Sex: Male

DRUGS (4)
  1. PRILOSEC [Concomitant]
  2. POTASSIUM [Concomitant]
  3. RYTHMOL SR [Suspect]
     Indication: ATRIAL FIBRILLATION
     Dosage: 225MG PER DAY
     Route: 048
  4. LISINOPRIL [Concomitant]

REACTIONS (3)
  - FATIGUE [None]
  - ARRHYTHMIA [None]
  - THERAPEUTIC RESPONSE DECREASED [None]
